FAERS Safety Report 13463322 (Version 1)
Quarter: 2017Q2

REPORT INFORMATION
  Report Type: Spontaneous
  Country: US (occurrence: US)
  Receive Date: 20170420
  Receipt Date: 20170420
  Transmission Date: 20170830
  Serious: Yes (Hospitalization)
  Sender: FDA-Public Use
  Company Number: US-BAYER-2017-071740

PATIENT
  Age: 40 Year
  Sex: Female

DRUGS (2)
  1. ACETYLSALICYLIC ACID (} 100 MG) [Suspect]
     Active Substance: ASPIRIN
     Dosage: UNK
  2. TICAGRELOR [Interacting]
     Active Substance: TICAGRELOR

REACTIONS (6)
  - Muscle oedema [None]
  - Joint range of motion decreased [None]
  - Drug administration error [None]
  - Haematoma [None]
  - Arthralgia [None]
  - Labelled drug-drug interaction medication error [None]
